FAERS Safety Report 5121618-7 (Version None)
Quarter: 2006Q4

REPORT INFORMATION
  Report Type: 
  Country: None (occurrence: None)
  Receive Date: 20061006
  Receipt Date: 20060928
  Transmission Date: 20070319
  Serious: Yes (Death)
  Sender: FDA-Public Use
  Company Number: US-AVENTIS-200618156US

PATIENT
  Sex: Male

DRUGS (2)
  1. KETEK [Suspect]
     Indication: PNEUMONIA
     Dosage: DOSE: UNK
  2. KETEK [Suspect]
     Indication: BRONCHITIS
     Dosage: DOSE: UNK

REACTIONS (1)
  - PNEUMONIA [None]
